FAERS Safety Report 4661998-X (Version None)
Quarter: 2005Q2

REPORT INFORMATION
  Report Type: 
  Country: None (occurrence: None)
  Receive Date: 20050512
  Receipt Date: 20050430
  Transmission Date: 20051028
  Serious: Yes (Other)
  Sender: FDA-Public Use
  Company Number: 2005044743

PATIENT
  Age: 55 Year
  Sex: Female
  Weight: 84.369 kg

DRUGS (8)
  1. NEURONTIN [Suspect]
     Indication: FIBROMYALGIA
     Dosage: 300 MG (100 MG, 3 IN 1 D)
     Dates: start: 20040701
  2. ESTRATEST H.S. [Concomitant]
  3. MEDROYPROGESTERONE ACETATE (MEDROYPROGESTERONE ACETATE) [Concomitant]
  4. ATORVASTATIN CALCIUM [Concomitant]
  5. CLONAZEPAM [Concomitant]
  6. FUROSEMIDE [Concomitant]
  7. TIZANIDINE HCL [Concomitant]
  8. PREDNISONE [Concomitant]

REACTIONS (9)
  - DIZZINESS [None]
  - FEAR [None]
  - FEELING ABNORMAL [None]
  - INCORRECT DOSE ADMINISTERED [None]
  - INCREASED APPETITE [None]
  - LABYRINTHITIS [None]
  - MYALGIA [None]
  - VERTIGO [None]
  - VISUAL DISTURBANCE [None]
